FAERS Safety Report 6404884-7 (Version None)
Quarter: 2009Q4

REPORT INFORMATION
  Report Type: 
  Country: None (occurrence: None)
  Receive Date: 20091019
  Receipt Date: 20091009
  Transmission Date: 20100525
  Serious: Yes (Life-Threatening, Hospitalization, Other)
  Sender: FDA-Public Use
  Company Number: BE-ELI_LILLY_AND_COMPANY-BE200910002026

PATIENT
  Age: 64 Year
  Sex: Female
  Weight: 95 kg

DRUGS (7)
  1. BYETTA [Suspect]
     Indication: TYPE 2 DIABETES MELLITUS
     Dosage: UNK, UNKNOWN
     Route: 065
     Dates: start: 20090421, end: 20090101
  2. ZESTRIL [Concomitant]
     Dosage: 20 D/F, DAILY (1/D)
     Dates: start: 19981218
  3. NOVONORM [Concomitant]
     Dosage: (3 X 2MG) 6 MG, UNKNOWN
     Dates: start: 20070611
  4. NOVONORM [Concomitant]
     Dosage: 16 MG (4 X 4MG) 4/D
  5. METFORMIN HYDROCHLORIDE [Concomitant]
     Dosage: 850 MG, 3/D
     Dates: start: 20060817
  6. INSULATARD [Concomitant]
     Dosage: 8 IU, EACH EVENING
     Route: 065
  7. BISOPROLOL [Concomitant]
     Dosage: 5 MG, DAILY (1/D)

REACTIONS (9)
  - ABDOMINAL PAIN [None]
  - ALANINE AMINOTRANSFERASE INCREASED [None]
  - ASPARTATE AMINOTRANSFERASE INCREASED [None]
  - CHROMATURIA [None]
  - HYPOKALAEMIA [None]
  - HYPOMAGNESAEMIA [None]
  - PANCREATITIS [None]
  - VENTRICULAR FIBRILLATION [None]
  - VOMITING [None]
